FAERS Safety Report 7587072-0 (Version None)
Quarter: 2011Q3

REPORT INFORMATION
  Report Type: 
  Country: None (occurrence: None)
  Receive Date: 20110701
  Receipt Date: 20110620
  Transmission Date: 20111222
  Serious: Yes (Hospitalization)
  Sender: FDA-Public Use
  Company Number: PHHY2011FR50587

PATIENT
  Sex: Male
  Weight: 64 kg

DRUGS (6)
  1. ASPIRIN [Concomitant]
     Dosage: 160 MG, UNK
     Dates: start: 20000101
  2. STRUCTOFLEX [Concomitant]
     Dosage: 625 MG, UNK
     Dates: start: 20110101
  3. GELUPRANE [Concomitant]
     Dosage: 500 MG, UNK
     Dates: start: 20110101
  4. VALSARTAN  AND HYDROCHLOROTHIAZIDE [Suspect]
     Indication: HYPERTENSION
     Dosage: 160 MG OF VALSARTAN ADN 12.5 MG OF HYDROCHLOROTHIAZIDE, ONCE DAILY
     Route: 048
     Dates: start: 20031204, end: 20110603
  5. RASILEZ [Suspect]
     Indication: HYPERTENSION
     Dosage: 150 MG, QD
     Route: 048
     Dates: start: 20110114, end: 20110420
  6. LERCANIDIPINE [Concomitant]
     Dosage: 20 MG, UNK
     Dates: start: 20000101

REACTIONS (17)
  - BLADDER MASS [None]
  - HAEMATURIA [None]
  - ATRIOVENTRICULAR BLOCK [None]
  - MUSCULAR WEAKNESS [None]
  - RENAL CYST [None]
  - INAPPROPRIATE ANTIDIURETIC HORMONE SECRETION [None]
  - MUSCLE DISORDER [None]
  - PARANEOPLASTIC DERMATOMYOSITIS [None]
  - RHABDOMYOLYSIS [None]
  - GAIT DISTURBANCE [None]
  - PROSTATOMEGALY [None]
  - BLOOD CREATINE PHOSPHOKINASE INCREASED [None]
  - HYPONATRAEMIA [None]
  - BLADDER CANCER [None]
  - BILIARY CYST [None]
  - SPINAL DISORDER [None]
  - MYALGIA [None]
